FAERS Safety Report 7629077-7 (Version None)
Quarter: 2011Q3

REPORT INFORMATION
  Report Type: 
  Country: None (occurrence: None)
  Receive Date: 20110722
  Receipt Date: 20110722
  Transmission Date: 20111222
  Serious: Yes (Hospitalization, Disabling, Other)
  Sender: FDA-Public Use
  Company Number: None

PATIENT
  Age: 25 Year
  Sex: Male
  Weight: 83.914 kg

DRUGS (1)
  1. LARIAM [Suspect]
     Dosage: UNKNOWN
     Route: 048
     Dates: start: 19930501, end: 19930916

REACTIONS (24)
  - MYALGIA [None]
  - COORDINATION ABNORMAL [None]
  - DECREASED APPETITE [None]
  - SOMNOLENCE [None]
  - RESTLESSNESS [None]
  - SUICIDAL IDEATION [None]
  - DISCOMFORT [None]
  - DIARRHOEA [None]
  - ABNORMAL BEHAVIOUR [None]
  - BALANCE DISORDER [None]
  - MEMORY IMPAIRMENT [None]
  - MENTAL STATUS CHANGES [None]
  - PARANOIA [None]
  - ABDOMINAL PAIN UPPER [None]
  - HEADACHE [None]
  - SLEEP TERROR [None]
  - SLEEP DISORDER [None]
  - COGNITIVE DISORDER [None]
  - FATIGUE [None]
  - NAUSEA [None]
  - ANXIETY [None]
  - MOOD ALTERED [None]
  - DEPRESSION [None]
  - CONFUSIONAL STATE [None]
